FAERS Safety Report 23083054 (Version 1)
Quarter: 2023Q4

REPORT INFORMATION
  Report Type: Spontaneous
  Country: CA (occurrence: None)
  Receive Date: 20231019
  Receipt Date: 20231019
  Transmission Date: 20240109
  Serious: Yes (Other)
  Sender: FDA-Public Use
  Company Number: CA-PFIZER INC-202300331295

PATIENT
  Age: 64 Year
  Sex: Female

DRUGS (17)
  1. METHOTREXATE [Suspect]
     Active Substance: METHOTREXATE
     Indication: Rheumatoid arthritis
     Dates: start: 200808
  2. METHOTREXATE [Suspect]
     Active Substance: METHOTREXATE
  3. ACTEMRA [Concomitant]
     Active Substance: TOCILIZUMAB
     Dates: start: 201608
  4. CALCIUM [Concomitant]
     Active Substance: CALCIUM
     Dosage: EVERY TWO TO THREE DAYS
  5. COVID-19 VACCINE [Concomitant]
  6. ENBREL [Concomitant]
     Active Substance: ETANERCEPT
     Indication: Rheumatoid arthritis
     Dates: start: 200811
  7. INFLUENZA VIRUS VACCINE [Concomitant]
     Active Substance: INFLUENZA VIRUS VACCINE
  8. FOLIC ACID [Concomitant]
     Active Substance: FOLIC ACID
     Dosage: SIX DAYS 9 WEEK
  9. HUMIRA [Concomitant]
     Active Substance: ADALIMUMAB
     Dosage: EVERY 2 WEEKS
     Dates: start: 201406, end: 201604
  10. LEFLUNOMIDE [Concomitant]
     Active Substance: LEFLUNOMIDE
     Dates: start: 201708, end: 201803
  11. LYRICA [Concomitant]
     Active Substance: PREGABALIN
  12. DOCONEXENT\ICOSAPENT [Concomitant]
     Active Substance: DOCONEXENT\ICOSAPENT
     Dosage: (FOR HER EYES)
  13. PANTOPRAZOLE [Concomitant]
     Active Substance: PANTOPRAZOLE
     Dosage: AS NEEDED, ON AVERAGE EVERY TWO TO THREE DAYS
  14. PREDNISONE [Concomitant]
     Active Substance: PREDNISONE
     Dosage: (GRADUALLY TAPERED AND OFF)
     Dates: start: 200808, end: 200911
  15. SERTRALINE [Concomitant]
     Active Substance: SERTRALINE HYDROCHLORIDE
  16. CHOLECALCIFEROL [Concomitant]
     Active Substance: CHOLECALCIFEROL
  17. MINERALS\VITAMINS [Concomitant]
     Active Substance: MINERALS\VITAMINS

REACTIONS (7)
  - Leukopenia [Unknown]
  - Thrombocytopenia [Unknown]
  - Compartment syndrome [Unknown]
  - Therapeutic product effect incomplete [Unknown]
  - Rheumatoid arthritis [Unknown]
  - Liver function test increased [Unknown]
  - Anaemia [Unknown]

NARRATIVE: CASE EVENT DATE: 20140101
